FAERS Safety Report 8574300-8 (Version None)
Quarter: 2012Q3

REPORT INFORMATION
  Report Type: 
  Country: None (occurrence: None)
  Receive Date: 20120806
  Receipt Date: 20120724
  Transmission Date: 20120928
  Serious: No
  Sender: FDA-Public Use
  Company Number: US-ASTRAZENECA-2012SE52694

PATIENT
  Sex: Female

DRUGS (2)
  1. SYMBICORT [Suspect]
     Indication: SEASONAL ALLERGY
     Dosage: 2 PUFFS TWO TIMES A DAY
     Route: 055
     Dates: start: 20120527
  2. SYMBICORT [Suspect]
     Indication: ASTHMA
     Dosage: 2 PUFFS TWO TIMES A DAY
     Route: 055
     Dates: start: 20120527

REACTIONS (2)
  - TREMOR [None]
  - OFF LABEL USE [None]
